FAERS Safety Report 6368981-7 (Version None)
Quarter: 2009Q3

REPORT INFORMATION
  Report Type: 
  Country: None (occurrence: None)
  Receive Date: 20090922
  Receipt Date: 20090916
  Transmission Date: 20100115
  Serious: Yes (Hospitalization)
  Sender: FDA-Public Use
  Company Number: US-ELI_LILLY_AND_COMPANY-US200907002394

PATIENT
  Sex: Female
  Weight: 116.55 kg

DRUGS (3)
  1. BYETTA [Suspect]
     Indication: TYPE 2 DIABETES MELLITUS
     Dosage: 5 UG, 2/D
     Route: 058
     Dates: start: 20071004, end: 20071227
  2. BYETTA [Suspect]
     Dosage: 10 UG, 2/D
     Route: 058
     Dates: start: 20071227
  3. AMARYL [Concomitant]
     Indication: TYPE 2 DIABETES MELLITUS
     Dosage: 4 MG, DAILY (1/D)
     Dates: start: 20060530, end: 20071004

REACTIONS (11)
  - BLOOD GLUCOSE INCREASED [None]
  - DECREASED APPETITE [None]
  - FEMORAL HERNIA [None]
  - GLYCOSYLATED HAEMOGLOBIN INCREASED [None]
  - HUNGER [None]
  - INJECTION SITE COLDNESS [None]
  - NAUSEA [None]
  - OFF LABEL USE [None]
  - POST PROCEDURAL DISCOMFORT [None]
  - UMBILICAL HERNIA [None]
  - WEIGHT DECREASED [None]
